FAERS Safety Report 14977228 (Version 1)
Quarter: 2018Q2

REPORT INFORMATION
  Report Type: Spontaneous
  Country: JP (occurrence: JP)
  Receive Date: 20180606
  Receipt Date: 20180606
  Transmission Date: 20180711
  Serious: Yes (Hospitalization, Other)
  Sender: FDA-Public Use
  Company Number: JP-CONCORDIA PHARMACEUTICALS INC.-GSH201805-001847

PATIENT
  Age: 83 Year
  Sex: Female

DRUGS (6)
  1. PREDNISOLONE. [Suspect]
     Active Substance: PREDNISOLONE
     Indication: AUTOIMMUNE HEPATITIS
  2. L DOPA [Concomitant]
     Active Substance: LEVODOPA
     Indication: PARKINSONISM
  3. CATECHOL-O-METHYLTRANSFERASE INHIBITOR [Concomitant]
     Indication: PARKINSONISM
  4. PREDNISOLONE. [Suspect]
     Active Substance: PREDNISOLONE
  5. L DOPA [Concomitant]
     Active Substance: LEVODOPA
  6. DOPAMINE RECEPTOR AGONIST [Concomitant]
     Indication: PARKINSONISM

REACTIONS (2)
  - Hypercalcaemia [Recovered/Resolved]
  - Hyperparathyroidism [Recovered/Resolved]
